FAERS Safety Report 4883516-3 (Version None)
Quarter: 2006Q1

REPORT INFORMATION
  Report Type: 
  Country: None (occurrence: None)
  Receive Date: 20060117
  Receipt Date: 20060117
  Transmission Date: 20060701
  Serious: Yes (Other)
  Sender: FDA-Public Use
  Company Number: None

PATIENT
  Age: 33 Year
  Sex: Female
  Weight: 58.9676 kg

DRUGS (2)
  1. CLARAVIS [Suspect]
     Indication: ACNE
     Dosage: 20 MG   1 PER DAY  PO
     Route: 048
     Dates: start: 20050707, end: 20050907
  2. CLARAVIS [Suspect]
     Indication: ACNE
     Dosage: 40 MG   1 PER DAY   PO
     Route: 048
     Dates: start: 20050908, end: 20051108

REACTIONS (21)
  - ABDOMINAL PAIN [None]
  - ADVERSE DRUG REACTION [None]
  - ARTHRALGIA [None]
  - BACK PAIN [None]
  - BURSITIS [None]
  - CHONDROPATHY [None]
  - DIFFICULTY IN WALKING [None]
  - DRUG EFFECT DECREASED [None]
  - INFLAMMATION [None]
  - JOINT RANGE OF MOTION DECREASED [None]
  - LIGAMENT DISORDER [None]
  - LOWER LIMB DEFORMITY [None]
  - LUPUS-LIKE SYNDROME [None]
  - METABOLIC DISORDER [None]
  - MUSCLE TIGHTNESS [None]
  - MUSCULAR WEAKNESS [None]
  - MUSCULOSKELETAL CHEST PAIN [None]
  - MUSCULOSKELETAL STIFFNESS [None]
  - MYALGIA [None]
  - PAINFUL RESPIRATION [None]
  - PLEURITIC PAIN [None]
